FAERS Safety Report 19538658 (Version 1)
Quarter: 2021Q3

REPORT INFORMATION
  Report Type: Report from Study
  Country: CO (occurrence: CO)
  Receive Date: 20210714
  Receipt Date: 20210714
  Transmission Date: 20211014
  Serious: Yes (Death, Other)
  Sender: FDA-Public Use
  Company Number: CO-BRISTOL-MYERS SQUIBB COMPANY-BMS-2021-068290

PATIENT
  Age: 65 Year
  Sex: Male
  Weight: 62 kg

DRUGS (2)
  1. NIVOLUMAB [Suspect]
     Active Substance: NIVOLUMAB
     Indication: RENAL CANCER
     Dosage: 186 MILLIGRAM, Q3WK
     Route: 042
     Dates: start: 20210525
  2. YERVOY [Suspect]
     Active Substance: IPILIMUMAB
     Indication: RENAL CANCER
     Dosage: 62 MILLIGRAM, Q3WK
     Route: 042
     Dates: start: 20210525

REACTIONS (1)
  - Death [Fatal]

NARRATIVE: CASE EVENT DATE: 20210709
